FAERS Safety Report 8832300 (Version 2)
Quarter: 2013Q2

REPORT INFORMATION
  Report Type: Report from Study
  Country: JP (occurrence: JP)
  Receive Date: 20121009
  Receipt Date: 20130514
  Transmission Date: 20140414
  Serious: Yes (Other)
  Sender: FDA-Public Use
  Company Number: JP-VERTEX PHARMACEUTICAL INC.-AE-2012-010950

PATIENT
  Age: 46 Year
  Sex: Male

DRUGS (10)
  1. VX-950 (TELAPREVIR) [Suspect]
     Indication: CHRONIC HEPATITIS C
     Dosage: 2250 MG, QD
     Route: 048
     Dates: start: 20120119, end: 20120405
  2. PEGINTRON /01543001/ [Suspect]
     Indication: CHRONIC HEPATITIS C
     Dosage: 1.2 ?G/KG, QW
     Route: 058
     Dates: start: 20120119, end: 20120208
  3. PEGINTRON /01543001/ [Suspect]
     Dosage: 0.72 ?G/KG, QW
     Route: 058
     Dates: start: 20120209
  4. PEGINTRON /01543001/ [Suspect]
     Dosage: 0.75 ?G/KG, QW
     Route: 058
  5. PEGINTRON /01543001/ [Suspect]
     Dosage: 0.726 ?G/KG, QW
     Route: 058
     Dates: end: 20120628
  6. REBETOL [Suspect]
     Indication: CHRONIC HEPATITIS C
     Dosage: 800 MG, QD
     Route: 048
     Dates: start: 20120119, end: 20120204
  7. REBETOL [Suspect]
     Dosage: 600 MG, QD
     Route: 048
     Dates: start: 20120205, end: 20120209
  8. REBETOL [Suspect]
     Dosage: 200 MG, QD
     Route: 048
     Dates: start: 20120210, end: 20120627
  9. URSO                               /00465701/ [Concomitant]
     Dosage: 600 MG, QD
     Route: 048
     Dates: start: 20120628
  10. BEZATOL SR [Concomitant]
     Dosage: 400 MG, QD
     Route: 048

REACTIONS (1)
  - White blood cell count decreased [Not Recovered/Not Resolved]
